FAERS Safety Report 9098531 (Version 1)
Quarter: 2013Q1

REPORT INFORMATION
  Report Type: Spontaneous
  Country: IT (occurrence: IT)
  Receive Date: 20130213
  Receipt Date: 20130213
  Transmission Date: 20140127
  Serious: Yes (Other)
  Sender: FDA-Public Use
  Company Number: PHHY2013IT013261

PATIENT
  Age: 52 Year
  Sex: Male

DRUGS (4)
  1. VOLTAREN [Suspect]
     Indication: BACK PAIN
     Dosage: 1 U, TOTAL
     Route: 030
     Dates: start: 20130103, end: 20130103
  2. MUSCORIL [Suspect]
     Indication: BACK PAIN
     Dosage: 1 U, DAILY
     Route: 030
     Dates: start: 20130103, end: 20130103
  3. VYTORIN [Concomitant]
     Route: 048
  4. TANDEMACT [Concomitant]
     Route: 048

REACTIONS (1)
  - Presyncope [Recovering/Resolving]
